FAERS Safety Report 8864600 (Version 1)
Quarter: 2012Q4

REPORT INFORMATION
  Report Type: 
  Country: US (occurrence: US)
  Receive Date: 20121024
  Receipt Date: 20121024
  Transmission Date: 20130627
  Serious: No
  Sender: FDA-Public Use
  Company Number: US-AMGEN-USASP2011068492

PATIENT
  Age: 37 Year
  Sex: Female
  Weight: 52.15 kg

DRUGS (5)
  1. ENBREL [Suspect]
     Indication: PSORIATIC ARTHROPATHY
     Dosage: 50 mg, qwk
     Route: 058
  2. XANAX [Concomitant]
     Dosage: 1 mg, UNK
     Route: 048
  3. MOTRIN [Concomitant]
     Dosage: 800 mg, UNK
     Route: 048
  4. PAXIL CR [Concomitant]
     Dosage: 12.5 mg, UNK
     Route: 048
  5. SULFASALAZIN [Concomitant]
     Dosage: 500 mg, UNK
     Route: 048

REACTIONS (1)
  - Increased tendency to bruise [Unknown]
